FAERS Safety Report 4761043-1 (Version None)
Quarter: 2005Q3

REPORT INFORMATION
  Report Type: 
  Country: None (occurrence: None)
  Receive Date: 20050901
  Receipt Date: 20050819
  Transmission Date: 20060218
  Serious: Yes (Hospitalization)
  Sender: FDA-Public Use
  Company Number: US015526

PATIENT
  Age: 62 Year
  Sex: Female

DRUGS (17)
  1. GABITRIL [Suspect]
     Indication: ANXIETY
     Dosage: 4 MG BID, ORAL
     Route: 048
     Dates: start: 20040913, end: 20041102
  2. GABITRIL [Suspect]
     Indication: INSOMNIA
     Dosage: 4 MG BID, ORAL
     Route: 048
     Dates: start: 20040913, end: 20041102
  3. GABITRIL [Suspect]
     Indication: ANXIETY
     Dosage: 2 MG BID ORAL
     Route: 048
     Dates: start: 20041103, end: 20041106
  4. GABITRIL [Suspect]
     Indication: INSOMNIA
     Dosage: 2 MG BID ORAL
     Route: 048
     Dates: start: 20041103, end: 20041106
  5. GABITRIL [Suspect]
     Indication: ANXIETY
     Dosage: 4 MG QHS, ORAL
     Route: 048
     Dates: start: 20041107, end: 20041209
  6. GABITRIL [Suspect]
     Indication: INSOMNIA
     Dosage: 4 MG QHS, ORAL
     Route: 048
     Dates: start: 20041107, end: 20041209
  7. GABITRIL [Suspect]
     Indication: ANXIETY
     Dosage: 4 MG QHS, ORAL
     Route: 048
     Dates: start: 20041210, end: 20041210
  8. GABITRIL [Suspect]
     Indication: INSOMNIA
     Dosage: 4 MG QHS, ORAL
     Route: 048
     Dates: start: 20041210, end: 20041210
  9. GABITRIL [Suspect]
     Indication: ANXIETY
     Dosage: 4 MG QHS ORAL
     Route: 048
     Dates: start: 20041213, end: 20050421
  10. GABITRIL [Suspect]
     Indication: INSOMNIA
     Dosage: 4 MG QHS ORAL
     Route: 048
     Dates: start: 20041213, end: 20050421
  11. ABILITY [Concomitant]
  12. ZYPREXA [Concomitant]
  13. TRAZODONE [Concomitant]
  14. DEPAKOTE [Concomitant]
  15. ATIVAN [Concomitant]
  16. SYNTHROID [Concomitant]
  17. PREVACID [Concomitant]

REACTIONS (1)
  - GRAND MAL CONVULSION [None]
